FAERS Safety Report 9147850 (Version 1)
Quarter: 2013Q1

REPORT INFORMATION
  Report Type: Spontaneous
  Country: US (occurrence: US)
  Receive Date: 20130307
  Receipt Date: 20130307
  Transmission Date: 20140127
  Serious: Yes (Hospitalization)
  Sender: FDA-Public Use
  Company Number: US-ELI_LILLY_AND_COMPANY-US201302010172

PATIENT
  Sex: Male

DRUGS (7)
  1. EFFIENT [Suspect]
     Indication: STENT PLACEMENT
     Dosage: 10 MG, QD
     Dates: start: 20130118
  2. METFORMIN [Concomitant]
     Indication: DIABETES MELLITUS
     Dosage: 100 MG, BID
  3. GLIMEPIRIDE [Concomitant]
     Indication: DIABETES MELLITUS
     Dosage: 2 MG, QD
  4. PRAVASTATIN [Concomitant]
     Indication: BLOOD CHOLESTEROL
     Dosage: 20 MG, QD
  5. ISOSORBIDE [Concomitant]
     Indication: VASODILATION PROCEDURE
     Dosage: 60 MG, QD
  6. ASPIRIN [Concomitant]
     Dosage: 81 MG, QD
  7. LISINOPRIL [Concomitant]
     Indication: BLOOD PRESSURE
     Dosage: 5 MG, QD

REACTIONS (1)
  - Stent malfunction [Recovered/Resolved]
